FAERS Safety Report 9053313 (Version 4)
Quarter: 2014Q2

REPORT INFORMATION
  Report Type: Spontaneous
  Country: US (occurrence: US)
  Receive Date: 20130207
  Receipt Date: 20140521
  Transmission Date: 20141212
  Serious: Yes (Hospitalization)
  Sender: FDA-Public Use
  Company Number: US-B.I. PHARMACEUTICALS,INC./RIDGEFIELD-2013-BI-02902BP

PATIENT
  Age: 54 Year
  Sex: Male
  Weight: 70.31 kg

DRUGS (2)
  1. PRADAXA [Suspect]
     Indication: ATRIAL FIBRILLATION
     Route: 065
     Dates: start: 20111220, end: 201202
  2. PRADAXA [Suspect]
     Indication: THROMBOSIS PROPHYLAXIS

REACTIONS (1)
  - Gastrointestinal haemorrhage [Recovered/Resolved]
